FAERS Safety Report 4695092-9 (Version None)
Quarter: 2005Q2

REPORT INFORMATION
  Report Type: 
  Country: None (occurrence: None)
  Receive Date: 20050617
  Receipt Date: 20050603
  Transmission Date: 20051028
  Serious: Yes (Other)
  Sender: FDA-Public Use
  Company Number: 2001080113CA

PATIENT
  Age: 54 Year
  Sex: Female
  Weight: 86.2 kg

DRUGS (7)
  1. EPIRUBICIN HCL [Suspect]
     Indication: BREAST CANCER FEMALE
     Dosage: 86 MG (CYCLIC INTERVAL: WEEKLY), INTRAVENOUS
     Route: 042
     Dates: start: 20011018, end: 20011025
  2. ADRUCIL [Suspect]
     Indication: BREAST CANCER FEMALE
     Dosage: 708 MG (CYCLIC INTERVAL: WEEKLY), INTRAVENOUS
     Route: 042
     Dates: start: 20011018, end: 20011025
  3. CYCLOPHOSPHAMIDE [Suspect]
     Indication: BREAST CANCER FEMALE
     Dosage: 100 MG (DAILY), ORAL
     Route: 048
     Dates: start: 20011018, end: 20011031
  4. DILTIAZEM [Concomitant]
  5. RANITIDINE HCL [Concomitant]
  6. ELTROXIN (LEVOTHYROXINE SODIUM) [Concomitant]
  7. NITRO-DUR [Concomitant]

REACTIONS (5)
  - INFECTION [None]
  - MUCOSAL INFLAMMATION [None]
  - NEUTROPENIA [None]
  - PROCTALGIA [None]
  - RECTAL HAEMORRHAGE [None]
